FAERS Safety Report 18425713 (Version 6)
Quarter: 2023Q1

REPORT INFORMATION
  Report Type: Report from Study
  Country: IT (occurrence: None)
  Receive Date: 20201026
  Receipt Date: 20230206
  Transmission Date: 20230417
  Serious: Yes (Hospitalization)
  Sender: FDA-Public Use
  Company Number: IT-ROCHE-2696549

PATIENT
  Age: 48 Year
  Sex: Female
  Weight: 58 kg

DRUGS (37)
  1. ATEZOLIZUMAB [Suspect]
     Active Substance: ATEZOLIZUMAB
     Indication: Breast cancer
     Dosage: NUMBER OF COURSES WERE 6, LAST DOSE BEFORE SAE WAS 02/OCT/2020?ATEZOLIZUMAB WILL BE GIVEN 1200 MG I.
     Route: 041
     Dates: start: 20200608
  2. TRASTUZUMAB [Suspect]
     Active Substance: TRASTUZUMAB
     Indication: Breast cancer
     Dosage: NO. OF COURSES 6, LAST DOSE BEFORE SAE WAS 348 MG ON 02/OCT/2020, TOTAL DOSE OF LAST ADMINISTARTION
     Route: 041
     Dates: start: 20200608
  3. PERTUZUMAB [Suspect]
     Active Substance: PERTUZUMAB
     Indication: Breast cancer
     Dosage: NO. OF CYCLES 6, LAST DOSE BEFORE SAE WAS 420 MG (TOTAL DOSE) ON 02/OCT/2020 LOADING DOSE ?PERTUZUMA
     Route: 042
     Dates: start: 20200608
  4. PERTUZUMAB [Suspect]
     Active Substance: PERTUZUMAB
     Dosage: MAINTENANCE  DOSE?LAST DOSE BEFORE SAE WAS 420 MG ON 02/OCT/2020
     Route: 042
     Dates: end: 20201009
  5. CARBOPLATIN [Suspect]
     Active Substance: CARBOPLATIN
     Indication: Breast cancer
     Dosage: TOTAL DOSE WAS 225 MG, LAST DOSE BEFORE SAE WAS ON 09/OCT/2020, NUMBER OF CYCLES 6?CARBOPLATIN WILL
     Route: 042
     Dates: start: 20200608
  6. PACLITAXEL [Suspect]
     Active Substance: PACLITAXEL
     Indication: Breast cancer
     Dosage: LAST DOSE 147 MG BEFORE SAE WAS 90 MG/MQ ON 09/OCT/2020, NUMBER OF COURSES 6?PACLITAXEL WILL BE GIVE
     Route: 042
     Dates: start: 20200608
  7. METHYLPREDNISOLONE [Concomitant]
     Active Substance: METHYLPREDNISOLONE
     Route: 042
     Dates: start: 20201018, end: 20201019
  8. METHYLPREDNISOLONE [Concomitant]
     Active Substance: METHYLPREDNISOLONE
     Dates: start: 20201022
  9. METHYLPREDNISOLONE [Concomitant]
     Active Substance: METHYLPREDNISOLONE
     Route: 042
     Dates: start: 20201016, end: 20201017
  10. METHYLPREDNISOLONE [Concomitant]
     Active Substance: METHYLPREDNISOLONE
     Route: 042
     Dates: start: 20201020, end: 20201020
  11. METHYLPREDNISOLONE [Concomitant]
     Active Substance: METHYLPREDNISOLONE
     Route: 042
     Dates: start: 20201021, end: 20201021
  12. METHYLPREDNISOLONE [Concomitant]
     Active Substance: METHYLPREDNISOLONE
     Route: 042
     Dates: start: 20201022, end: 20201105
  13. METHYLPREDNISOLONE [Concomitant]
     Active Substance: METHYLPREDNISOLONE
     Route: 042
     Dates: start: 20201106, end: 20201111
  14. VANCOMYCIN [Concomitant]
     Active Substance: VANCOMYCIN
     Route: 048
  15. VANCOMYCIN [Concomitant]
     Active Substance: VANCOMYCIN
     Route: 042
     Dates: start: 20201022, end: 20201029
  16. VANCOMYCIN [Concomitant]
     Active Substance: VANCOMYCIN
     Route: 042
     Dates: start: 20201030, end: 20201109
  17. VANCOMYCIN [Concomitant]
     Active Substance: VANCOMYCIN
     Route: 042
     Dates: start: 20201110, end: 20201112
  18. METRONIDAZOLE [Concomitant]
     Active Substance: METRONIDAZOLE
     Dosage: 3 DAYS
     Route: 042
     Dates: start: 20201022, end: 20201109
  19. LEVOFLOXACIN [Concomitant]
     Active Substance: LEVOFLOXACIN
     Indication: Vascular device infection
     Dates: start: 20200904, end: 20200914
  20. LEVOFLOXACIN [Concomitant]
     Active Substance: LEVOFLOXACIN
     Dates: start: 20200812, end: 20200818
  21. AMOXICILLIN\CLAVULANIC ACID [Concomitant]
     Active Substance: AMOXICILLIN\CLAVULANIC ACID
     Indication: Vascular device infection
     Dates: start: 20200804, end: 20200807
  22. PIPERACILLIN [Concomitant]
     Active Substance: PIPERACILLIN
     Dates: start: 20201015, end: 20201022
  23. TAZOBACT [Concomitant]
     Route: 042
     Dates: start: 20201015, end: 20201022
  24. ACETAMINOPHEN [Concomitant]
     Active Substance: ACETAMINOPHEN
     Route: 042
     Dates: start: 20201015, end: 20201017
  25. ACETAMINOPHEN [Concomitant]
     Active Substance: ACETAMINOPHEN
     Route: 042
     Dates: start: 20201024, end: 20201024
  26. ACETAMINOPHEN [Concomitant]
     Active Substance: ACETAMINOPHEN
     Route: 042
     Dates: start: 20201101, end: 20201101
  27. FUROSEMIDE [Concomitant]
     Active Substance: FUROSEMIDE
     Dates: start: 20201017, end: 20201020
  28. FUROSEMIDE [Concomitant]
     Active Substance: FUROSEMIDE
     Route: 042
     Dates: start: 20201021, end: 20201022
  29. FUROSEMIDE [Concomitant]
     Active Substance: FUROSEMIDE
     Route: 042
     Dates: start: 20201023, end: 20201113
  30. OMEPRAZOLE [Concomitant]
     Active Substance: OMEPRAZOLE
     Route: 048
     Dates: start: 20201016, end: 20201113
  31. NYSTATIN [Concomitant]
     Active Substance: NYSTATIN
     Route: 048
     Dates: start: 20201029, end: 20201113
  32. ZOLPIDEM [Concomitant]
     Active Substance: ZOLPIDEM TARTRATE
     Dates: start: 20201104, end: 20201112
  33. CALCIUM GLUCONATE [Concomitant]
     Active Substance: CALCIUM GLUCONATE
     Dates: start: 20201016, end: 20201028
  34. FLUCONAZOLE [Concomitant]
     Active Substance: FLUCONAZOLE
     Route: 042
     Dates: start: 20201030, end: 20201112
  35. ALBUMIN HUMAN [Concomitant]
     Active Substance: ALBUMIN HUMAN
     Dates: start: 20201021, end: 20201113
  36. POTASSIUM [Concomitant]
     Active Substance: POTASSIUM
     Dates: start: 20201018, end: 20201113
  37. LANSOPRAZOLE [Concomitant]
     Active Substance: LANSOPRAZOLE
     Route: 048
     Dates: start: 20201031, end: 20201113

REACTIONS (1)
  - Enterocolitis [Recovered/Resolved]

NARRATIVE: CASE EVENT DATE: 20201013
